FAERS Safety Report 16130941 (Version 1)
Quarter: 2019Q1

REPORT INFORMATION
  Report Type: Spontaneous
  Country: AU (occurrence: AU)
  Receive Date: 20190328
  Receipt Date: 20190328
  Transmission Date: 20190418
  Serious: Yes (Other)
  Sender: FDA-Public Use
  Company Number: PHHY2019AU069856

PATIENT
  Age: 46 Year
  Sex: Female

DRUGS (1)
  1. NILOTINIB [Suspect]
     Active Substance: NILOTINIB
     Indication: CHRONIC MYELOID LEUKAEMIA
     Dosage: UNK
     Route: 065
     Dates: start: 20100625, end: 20140908

REACTIONS (13)
  - Anxiety [Unknown]
  - Headache [Recovered/Resolved]
  - Synovitis [Unknown]
  - Pain [Recovered/Resolved]
  - Arthralgia [Not Recovered/Not Resolved]
  - Cytogenetic analysis abnormal [Unknown]
  - Depression [Unknown]
  - Fluid retention [Recovered/Resolved]
  - Bone erosion [Unknown]
  - Upper respiratory tract infection [Unknown]
  - Joint swelling [Recovered/Resolved]
  - Weight increased [Unknown]
  - Peripheral swelling [Not Recovered/Not Resolved]
